FAERS Safety Report 5146707-2 (Version None)
Quarter: 2006Q4

REPORT INFORMATION
  Report Type: 
  Country: None (occurrence: None)
  Receive Date: 20061109
  Receipt Date: 20061025
  Transmission Date: 20070319
  Serious: Yes (Other)
  Sender: FDA-Public Use
  Company Number: US-ROCHE-468963

PATIENT
  Age: 89 Year
  Sex: Female
  Weight: 57.2 kg

DRUGS (6)
  1. BONIVA [Suspect]
     Indication: OSTEOPOROSIS
     Route: 065
     Dates: start: 20060523
  2. ACTOS [Concomitant]
     Route: 048
     Dates: start: 20040615
  3. GLUCOPHAGE [Concomitant]
     Route: 048
     Dates: start: 20040615
  4. NORVASC [Concomitant]
     Route: 048
  5. ZOCOR [Concomitant]
     Route: 048
  6. ISORDIL [Concomitant]
     Route: 048

REACTIONS (2)
  - ANKLE FRACTURE [None]
  - CARDIAC FAILURE CONGESTIVE [None]
